FAERS Safety Report 16214970 (Version 2)
Quarter: 2019Q2

REPORT INFORMATION
  Report Type: Spontaneous
  Country: BR (occurrence: BR)
  Receive Date: 20190418
  Receipt Date: 20190522
  Transmission Date: 20190711
  Serious: Yes (Other)
  Sender: FDA-Public Use
  Company Number: BR-BAXTER-2019BAX007604

PATIENT
  Age: 77 Year
  Sex: Female
  Weight: 68.2 kg

DRUGS (30)
  1. CHLORTALIDONE [Suspect]
     Active Substance: CHLORTHALIDONE
     Indication: PRODUCT USED FOR UNKNOWN INDICATION
     Route: 048
     Dates: start: 20190227, end: 20190303
  2. DIPIRONE [Suspect]
     Active Substance: METAMIZOLE SODIUM
     Indication: PRODUCT USED FOR UNKNOWN INDICATION
     Route: 042
     Dates: start: 20190226, end: 20190305
  3. GRANISETRON [Suspect]
     Active Substance: GRANISETRON
     Indication: PRODUCT USED FOR UNKNOWN INDICATION
     Route: 042
     Dates: start: 20190304, end: 20190307
  4. LINAGLIPTIN [Suspect]
     Active Substance: LINAGLIPTIN
     Indication: PRODUCT USED FOR UNKNOWN INDICATION
     Route: 048
     Dates: start: 20190302, end: 20190315
  5. MITEXAN [Suspect]
     Active Substance: MESNA
     Indication: PRODUCT USED FOR UNKNOWN INDICATION
     Route: 042
     Dates: start: 20190304, end: 20190306
  6. DIFENHIDRAMINA [DIPHENHYDRAMINE HYDROCHLORIDE] [Suspect]
     Active Substance: DIPHENHYDRAMINE HYDROCHLORIDE
     Indication: PRODUCT USED FOR UNKNOWN INDICATION
     Dosage: SINGLE DOSE
     Route: 042
     Dates: start: 20190303, end: 20190303
  7. SCOPOLAMINE [Suspect]
     Active Substance: SCOPOLAMINE
     Indication: PRODUCT USED FOR UNKNOWN INDICATION
     Route: 042
     Dates: start: 20190226, end: 20190305
  8. GENUXAL [Suspect]
     Active Substance: CYCLOPHOSPHAMIDE
     Indication: B-CELL LYMPHOMA
     Dosage: FIRST CYCLE OF R-HYPER-CVAD PROTOCOL
     Route: 042
     Dates: start: 20190304, end: 20190307
  9. MABTHERA [Suspect]
     Active Substance: RITUXIMAB
     Indication: NON-HODGKIN^S LYMPHOMA
     Dosage: FIRST CYCLE OF R-HYPER-CVAD PROTOCOL
     Route: 042
     Dates: start: 20190303, end: 20190303
  10. FILGRASTIM [Suspect]
     Active Substance: FILGRASTIM
     Indication: PROPHYLAXIS
     Route: 065
  11. PANTOPRAZOLE [Suspect]
     Active Substance: PANTOPRAZOLE
     Indication: PRODUCT USED FOR UNKNOWN INDICATION
     Route: 042
     Dates: start: 20190303, end: 20190325
  12. MORPHINE [Suspect]
     Active Substance: MORPHINE
     Indication: PRODUCT USED FOR UNKNOWN INDICATION
     Route: 042
     Dates: start: 20190301, end: 20190317
  13. MAGNESIUM SULPHATE [Concomitant]
     Active Substance: MAGNESIUM SULFATE
     Indication: PRODUCT USED FOR UNKNOWN INDICATION
     Dosage: 40 ML
     Route: 042
     Dates: end: 20190317
  14. FAULDOXO [Suspect]
     Active Substance: DOXORUBICIN HYDROCHLORIDE
     Indication: NON-HODGKIN^S LYMPHOMA
     Dosage: FIRST CYCLE OF R-HYPER-CVAD PROTOCOL; SINGLE DOSE
     Route: 042
     Dates: start: 20190307, end: 20190307
  15. DECADRON [Suspect]
     Active Substance: DEXAMETHASONE
     Indication: NON-HODGKIN^S LYMPHOMA
     Dosage: FIRST CYCLE OF R-HYPER-CVAD PROTOCOL; 2.5ML
     Route: 042
     Dates: start: 20190304, end: 20190305
  16. CYTARABINE. [Suspect]
     Active Substance: CYTARABINE
     Indication: NON-HODGKIN^S LYMPHOMA
     Dosage: FIRST CYCLE OF R-HYPER-CVAD PROTOCOL
     Route: 065
  17. ALLOPURINOL. [Suspect]
     Active Substance: ALLOPURINOL
     Indication: PRODUCT USED FOR UNKNOWN INDICATION
     Route: 048
     Dates: start: 20190227, end: 20190321
  18. CANDESARTAN. [Suspect]
     Active Substance: CANDESARTAN
     Indication: PRODUCT USED FOR UNKNOWN INDICATION
     Route: 048
     Dates: start: 20190226, end: 20190315
  19. FUROSEMIDE. [Suspect]
     Active Substance: FUROSEMIDE
     Indication: PRODUCT USED FOR UNKNOWN INDICATION
     Route: 042
     Dates: start: 20190305, end: 20190305
  20. HYDROCORTISONE. [Suspect]
     Active Substance: HYDROCORTISONE
     Indication: PRODUCT USED FOR UNKNOWN INDICATION
     Dosage: SINGLE DOSE
     Route: 042
     Dates: start: 20190303, end: 20190303
  21. FLUCONAZOLE. [Suspect]
     Active Substance: FLUCONAZOLE
     Indication: PRODUCT USED FOR UNKNOWN INDICATION
     Route: 048
     Dates: start: 20190302, end: 20190306
  22. METHYLPREDNISOLONE. [Suspect]
     Active Substance: METHYLPREDNISOLONE
     Indication: PRODUCT USED FOR UNKNOWN INDICATION
     Dosage: SINGLE DOSE
     Route: 042
     Dates: start: 20190303, end: 20190303
  23. ATORVASTATIN [Suspect]
     Active Substance: ATORVASTATIN
     Indication: PRODUCT USED FOR UNKNOWN INDICATION
     Route: 048
     Dates: start: 20190226, end: 20190414
  24. LEVAMLODIPINE [Concomitant]
     Active Substance: LEVAMLODIPINE
     Indication: PRODUCT USED FOR UNKNOWN INDICATION
     Route: 048
     Dates: start: 20190127, end: 20190315
  25. CEFAZOLIN [Suspect]
     Active Substance: CEFAZOLIN
     Indication: PRODUCT USED FOR UNKNOWN INDICATION
     Route: 042
     Dates: start: 20190303, end: 20190303
  26. METFORMIN [Suspect]
     Active Substance: METFORMIN HYDROCHLORIDE
     Indication: PRODUCT USED FOR UNKNOWN INDICATION
     Route: 048
     Dates: start: 20190302, end: 20190315
  27. CLORETO DE S?DIO - BAXTER [Suspect]
     Active Substance: SODIUM CHLORIDE
     Indication: MEDICATION DILUTION
     Route: 042
     Dates: start: 20190301, end: 20190317
  28. FAULDVINCRI [Suspect]
     Active Substance: VINCRISTINE SULFATE
     Indication: NON-HODGKIN^S LYMPHOMA
     Dosage: FIRST CYCLE OF R-HYPER-CVAD PROTOCOL; SINGLE DOSE
     Route: 042
     Dates: start: 20190307, end: 20190307
  29. FAULDMETRO [Suspect]
     Active Substance: METHOTREXATE SODIUM
     Indication: NON-HODGKIN^S LYMPHOMA
     Dosage: FIRST CYCLE OF R-HYPER-CVAD PROTOCOL
     Route: 037
     Dates: start: 20190303, end: 20190303
  30. CEFAZOLIN [Suspect]
     Active Substance: CEFAZOLIN
     Route: 042
     Dates: start: 20190303, end: 20190307

REACTIONS (7)
  - Bone marrow failure [Recovered/Resolved]
  - Diarrhoea [Recovered/Resolved]
  - Clostridium difficile colitis [Recovered/Resolved]
  - Gastrointestinal inflammation [Recovered/Resolved]
  - Intestinal perforation [Unknown]
  - Pseudomonal sepsis [Recovered/Resolved]
  - Stomatitis [Recovered/Resolved]

NARRATIVE: CASE EVENT DATE: 201903
